FAERS Safety Report 14074243 (Version 1)
Quarter: 2017Q4

REPORT INFORMATION
  Report Type: Spontaneous
  Country: US (occurrence: US)
  Receive Date: 20171011
  Receipt Date: 20171011
  Transmission Date: 20180321
  Serious: No
  Sender: FDA-Public Use
  Company Number: US-GLAXOSMITHKLINE-US2017153047

PATIENT
  Sex: Male

DRUGS (2)
  1. ABREVA [Suspect]
     Active Substance: DOCOSANOL
     Dosage: UNK
     Dates: start: 201706
  2. ABREVA [Suspect]
     Active Substance: DOCOSANOL
     Indication: PRODUCT USED FOR UNKNOWN INDICATION
     Dosage: ONCE, 1D
     Route: 061
     Dates: start: 201704

REACTIONS (3)
  - Inappropriate schedule of drug administration [Unknown]
  - Product quality issue [Unknown]
  - Incorrect drug administration duration [Unknown]
